FAERS Safety Report 11449395 (Version 1)
Quarter: 2015Q3

REPORT INFORMATION
  Report Type: Report from Study
  Country: US (occurrence: US)
  Receive Date: 20150902
  Receipt Date: 20150902
  Transmission Date: 20151125
  Serious: No
  Sender: FDA-Public Use
  Company Number: US-AMGEN-USASL2015088967

PATIENT
  Age: 41 Year
  Sex: Female

DRUGS (1)
  1. ENBREL [Suspect]
     Active Substance: ETANERCEPT
     Indication: ANKYLOSING SPONDYLITIS
     Dosage: 50 MG, QWK
     Route: 065
     Dates: start: 2013, end: 2015

REACTIONS (9)
  - Dysphagia [Unknown]
  - Swollen tongue [Unknown]
  - Insomnia [Unknown]
  - Candida infection [Recovering/Resolving]
  - Oropharyngeal pain [Unknown]
  - Pharyngeal inflammation [Unknown]
  - Gastrooesophageal reflux disease [Unknown]
  - Tongue discolouration [Unknown]
  - Choking sensation [Unknown]

NARRATIVE: CASE EVENT DATE: 2015
